FAERS Safety Report 6897664-X (Version None)
Quarter: 2010Q3

REPORT INFORMATION
  Report Type: 
  Country: None (occurrence: None)
  Receive Date: 20100802
  Receipt Date: 20070628
  Transmission Date: 20110219
  Serious: Yes (Other)
  Sender: FDA-Public Use
  Company Number: US-PFIZER INC-2007033785

PATIENT
  Age: 26 Year
  Sex: Female

DRUGS (6)
  1. LYRICA [Suspect]
     Indication: PAIN
     Dates: start: 20070520, end: 20070522
  2. LORTAB [Concomitant]
     Dosage: 7.5,AS NECESSARY
  3. FLEXERIL [Concomitant]
     Dosage: 10
  4. IMITREX [Concomitant]
     Dosage: 100
  5. ALL OTHER THERAPEUTIC PRODUCTS [Concomitant]
     Indication: ALLERGIC SINUSITIS
     Dosage: 10
  6. TYLENOL W/ CODEINE NO. 3 [Concomitant]

REACTIONS (2)
  - APHASIA [None]
  - MOVEMENT DISORDER [None]
